FAERS Safety Report 6504844-1 (Version None)
Quarter: 2009Q4

REPORT INFORMATION
  Report Type: 
  Country: None (occurrence: None)
  Receive Date: 20091218
  Receipt Date: 20091210
  Transmission Date: 20100525
  Serious: Yes (Hospitalization)
  Sender: FDA-Public Use
  Company Number: CH-ASTRAZENECA-2009SE31408

PATIENT
  Age: 26 Year
  Sex: Female
  Weight: 63 kg

DRUGS (12)
  1. NEXIUM [Suspect]
     Indication: OESOPHAGITIS
     Route: 048
     Dates: start: 20070305
  2. LISITRIL [Suspect]
     Indication: ESSENTIAL HYPERTENSION
     Route: 048
     Dates: start: 20070901, end: 20091101
  3. FLUOXETINE HCL [Suspect]
     Route: 048
     Dates: start: 20060101
  4. AMOXICILLIN [Suspect]
     Indication: OESOPHAGITIS
     Route: 048
     Dates: start: 20070822, end: 20070828
  5. CLARITHROMYCIN [Suspect]
     Indication: OESOPHAGITIS
     Route: 048
     Dates: start: 20070822, end: 20070828
  6. BETALOC ZOK [Concomitant]
     Indication: ESSENTIAL HYPERTENSION
     Route: 048
     Dates: start: 20070901
  7. NORVASC [Concomitant]
     Indication: ESSENTIAL HYPERTENSION
     Route: 048
     Dates: start: 20070901, end: 20080101
  8. SEVLKAR [Concomitant]
     Indication: ESSENTIAL HYPERTENSION
     Route: 048
     Dates: start: 20080101, end: 20091101
  9. SIRDALUD [Concomitant]
     Indication: HEMIPLEGIA
     Route: 048
     Dates: start: 20040101
  10. ASPIRIN [Concomitant]
     Indication: CEREBRAL INFARCTION
     Route: 065
     Dates: start: 20040101
  11. TEMESTA [Concomitant]
     Route: 048
  12. LEXOTANIL [Concomitant]
     Dosage: AS NECESSARY
     Route: 048

REACTIONS (2)
  - PANCREATITIS ACUTE [None]
  - PANCREATITIS RELAPSING [None]
